FAERS Safety Report 13420946 (Version 2)
Quarter: 2017Q2

REPORT INFORMATION
  Report Type: Spontaneous
  Country: US (occurrence: US)
  Receive Date: 20170410
  Receipt Date: 20170420
  Transmission Date: 20170830
  Serious: Yes (Other)
  Sender: FDA-Public Use
  Company Number: US-TORRENT-00002650

PATIENT
  Age: 55 Year
  Sex: Male

DRUGS (1)
  1. LAMOTRIGINE. [Suspect]
     Active Substance: LAMOTRIGINE

REACTIONS (4)
  - Retinal pigment epitheliopathy [Recovering/Resolving]
  - Blood creatinine increased [Unknown]
  - Transaminases increased [Unknown]
  - Drug reaction with eosinophilia and systemic symptoms [Recovering/Resolving]
